FAERS Safety Report 6049338-5 (Version None)
Quarter: 2009Q1

REPORT INFORMATION
  Report Type: 
  Country: None (occurrence: None)
  Receive Date: 20090123
  Receipt Date: 20090116
  Transmission Date: 20090719
  Serious: Yes (Hospitalization)
  Sender: FDA-Public Use
  Company Number: JP-B.I. PHARMACEUTICALS,INC./RIDGEFIELD-2009-BP-00460NB

PATIENT
  Sex: Male
  Weight: 64.5 kg

DRUGS (3)
  1. MICARDIS [Suspect]
     Indication: HYPERTENSION
     Dosage: 40MG
     Route: 048
     Dates: start: 20081224
  2. OTHER COMPANY'S INVESTIGATIONAL PRODUCT (UNK) [Suspect]
     Route: 065
     Dates: start: 20080826
  3. LORFENAMIN [Concomitant]
     Indication: BACK PAIN
     Dosage: 60MG
     Route: 048
     Dates: start: 20080827

REACTIONS (6)
  - ELECTROCARDIOGRAM QT PROLONGED [None]
  - FALL [None]
  - LOSS OF CONSCIOUSNESS [None]
  - MUSCULOSKELETAL PAIN [None]
  - PAIN IN EXTREMITY [None]
  - VOMITING [None]
